FAERS Safety Report 4389187-7 (Version None)
Quarter: 2004Q3

REPORT INFORMATION
  Report Type: 
  Country: None (occurrence: None)
  Receive Date: 20040701
  Receipt Date: 20040701
  Transmission Date: 20050211
  Serious: Yes (Hospitalization)
  Sender: FDA-Public Use
  Company Number: None

PATIENT
  Sex: Male
  Weight: 121 kg

DRUGS (1)
  1. SUMATRIPTAN 25 MG [Suspect]
     Indication: MIGRAINE
     Dosage: 25 MG PRN AT ONS ORAL
     Route: 048
     Dates: start: 20020923, end: 20040413

REACTIONS (2)
  - CHEST PAIN [None]
  - HEADACHE [None]
